FAERS Safety Report 7197997-6 (Version None)
Quarter: 2010Q4

REPORT INFORMATION
  Report Type: 
  Country: None (occurrence: None)
  Receive Date: 20101227
  Receipt Date: 20101215
  Transmission Date: 20110411
  Serious: Yes (Hospitalization, Other)
  Sender: FDA-Public Use
  Company Number: FR-SANOFI-AVENTIS-2010SA077100

PATIENT
  Sex: Male
  Weight: 96 kg

DRUGS (12)
  1. ARAVA [Suspect]
     Route: 048
     Dates: start: 20080801, end: 20090301
  2. ARAVA [Suspect]
     Route: 048
     Dates: start: 20090101, end: 20090526
  3. ETANERCEPT [Suspect]
     Indication: PSORIATIC ARTHROPATHY
     Route: 058
     Dates: start: 20081128, end: 20090101
  4. ETANERCEPT [Suspect]
     Indication: ANKYLOSING SPONDYLITIS
     Route: 058
     Dates: start: 20081128, end: 20090101
  5. ETANERCEPT [Suspect]
     Route: 058
     Dates: start: 20090401
  6. ETANERCEPT [Suspect]
     Route: 058
     Dates: start: 20090401
  7. ETANERCEPT [Suspect]
     Route: 058
     Dates: start: 20090101
  8. ETANERCEPT [Suspect]
     Route: 058
     Dates: start: 20090101
  9. DAFALGAN [Concomitant]
  10. TOPALGIC [Concomitant]
     Dates: start: 20080110
  11. PREVISCAN [Concomitant]
  12. DUSPATALIN ^FERROSAN^ [Concomitant]

REACTIONS (12)
  - ABDOMINAL PAIN [None]
  - COUGH [None]
  - DEPRESSION [None]
  - DIARRHOEA [None]
  - DYSPHAGIA [None]
  - HEADACHE [None]
  - HYPERHIDROSIS [None]
  - NUCLEAR MAGNETIC RESONANCE IMAGING BRAIN ABNORMAL [None]
  - OROPHARYNGEAL PAIN [None]
  - PYREXIA [None]
  - TRACHEITIS [None]
  - WEIGHT DECREASED [None]
